FAERS Safety Report 14181537 (Version 1)
Quarter: 2017Q4

REPORT INFORMATION
  Report Type: Spontaneous
  Country: US (occurrence: US)
  Receive Date: 20171113
  Receipt Date: 20171113
  Transmission Date: 20180321
  Serious: No
  Sender: FDA-Public Use
  Company Number: US-009507513-1711USA002556

PATIENT
  Age: 60 Year
  Sex: Female

DRUGS (2)
  1. INVANZ [Suspect]
     Active Substance: ERTAPENEM SODIUM
     Indication: URINARY TRACT INFECTION
     Dosage: UNK
     Route: 030
     Dates: start: 20171101
  2. LIDOCAINE. [Suspect]
     Active Substance: LIDOCAINE
     Dosage: UNK
     Route: 030
     Dates: start: 20171101

REACTIONS (3)
  - Product preparation error [Unknown]
  - Contraindicated product administered [Unknown]
  - Vertigo [Not Recovered/Not Resolved]

NARRATIVE: CASE EVENT DATE: 201711
